FAERS Safety Report 7466939-8 (Version None)
Quarter: 2011Q2

REPORT INFORMATION
  Report Type: 
  Country: None (occurrence: None)
  Receive Date: 20110509
  Receipt Date: 20110426
  Transmission Date: 20111010
  Serious: Yes (Other)
  Sender: FDA-Public Use
  Company Number: DE-JNJFOC-20091203810

PATIENT
  Age: 30 Year
  Sex: Female

DRUGS (5)
  1. DURAGESIC-100 [Suspect]
     Route: 042
  2. PREDNISOLONE [Concomitant]
  3. DURAGESIC-100 [Suspect]
     Indication: AUTOIMMUNE HEPATITIS
     Route: 042
  4. AZATHIOPRINE [Concomitant]
  5. VITAMIN TAB [Suspect]
     Indication: PRODUCT USED FOR UNKNOWN INDICATION
     Route: 050

REACTIONS (4)
  - HERPES ZOSTER OPHTHALMIC [None]
  - DRUG EXPOSURE BEFORE PREGNANCY [None]
  - PSOAS ABSCESS [None]
  - THERAPEUTIC RESPONSE UNEXPECTED [None]
